FAERS Safety Report 8922149 (Version 1)
Quarter: 2012Q4

REPORT INFORMATION
  Report Type: 
  Country: US (occurrence: US)
  Receive Date: 20121123
  Receipt Date: 20121123
  Transmission Date: 20130627
  Serious: No
  Sender: FDA-Public Use
  Company Number: US-009507513-1211USA002005

PATIENT
  Sex: Female

DRUGS (4)
  1. PEGINTRON [Suspect]
     Indication: HEPATITIS C
     Dosage: 120 mcg/0.5 mL qw
     Route: 058
  2. PROCRIT [Concomitant]
     Dosage: 40000 ml, UNK
  3. PROPRANOLOL HYDROCHLORIDE [Concomitant]
     Dosage: 10 mg, UNK
  4. ZOFRAN [Concomitant]
     Dosage: 4 mg, UNK

REACTIONS (3)
  - Anaemia [Unknown]
  - Decreased appetite [Unknown]
  - Nausea [Unknown]
